FAERS Safety Report 12333293 (Version 1)
Quarter: 2016Q2

REPORT INFORMATION
  Report Type: Spontaneous
  Country: US (occurrence: US)
  Receive Date: 20160504
  Receipt Date: 20160504
  Transmission Date: 20160815
  Serious: No
  Sender: FDA-Public Use
  Company Number: US-ROCHE-ITM201504IM015057

PATIENT
  Sex: Female

DRUGS (2)
  1. ESBRIET [Suspect]
     Active Substance: PIRFENIDONE
     Route: 048
  2. ESBRIET [Suspect]
     Active Substance: PIRFENIDONE
     Indication: IDIOPATHIC PULMONARY FIBROSIS
     Route: 048

REACTIONS (16)
  - Productive cough [Unknown]
  - Feeling abnormal [Unknown]
  - Abdominal distension [Unknown]
  - Treatment noncompliance [Unknown]
  - Throat irritation [Unknown]
  - Dry throat [Unknown]
  - Insomnia [Unknown]
  - Memory impairment [Unknown]
  - Gastrooesophageal reflux disease [Unknown]
  - Dysgeusia [Unknown]
  - Oesophageal pain [Unknown]
  - Abdominal distension [Recovering/Resolving]
  - Decreased appetite [Unknown]
  - Exfoliative rash [Unknown]
  - Nausea [Recovering/Resolving]
  - Oxygen consumption increased [Unknown]

NARRATIVE: CASE EVENT DATE: 2015
